FAERS Safety Report 8867507 (Version 1)
Quarter: 2012Q4

REPORT INFORMATION
  Report Type: 
  Country: US (occurrence: US)
  Receive Date: 20121025
  Receipt Date: 20121025
  Transmission Date: 20130627
  Serious: No
  Sender: FDA-Public Use
  Company Number: US-AMGEN-USASP2012017083

PATIENT
  Age: 21 Year
  Sex: Female

DRUGS (2)
  1. ENBREL [Suspect]
     Indication: PRODUCT USED FOR UNKNOWN INDICATION
     Dosage: 25 mg, 2 times/wk
  2. NAPROSYN /00256201/ [Concomitant]
     Dosage: 250 mg, UNK

REACTIONS (1)
  - Eye infection [Unknown]
